FAERS Safety Report 8369679-6 (Version None)
Quarter: 2012Q2

REPORT INFORMATION
  Report Type: 
  Country: None (occurrence: None)
  Receive Date: 20120518
  Receipt Date: 20120503
  Transmission Date: 20120825
  Serious: Yes (Death, Life-Threatening, Hospitalization, Disabling, Other)
  Sender: FDA-Public Use
  Company Number: US-MYLANLABS-2009AC000517

PATIENT
  Sex: Male
  Weight: 73.5 kg

DRUGS (19)
  1. MUCINEX [Concomitant]
  2. CARTIA XT [Concomitant]
  3. CORTISONE ACETATE [Concomitant]
  4. COREG [Concomitant]
  5. SPIRIVA [Concomitant]
  6. NYQUIL [Concomitant]
  7. DIGOXIN [Suspect]
     Indication: ATRIAL FIBRILLATION
     Route: 048
     Dates: start: 20051209, end: 20080129
  8. LEVAQUIN [Concomitant]
  9. ASTELIN [Concomitant]
  10. NORVASC [Concomitant]
  11. DIGOXIN [Suspect]
     Indication: CARDIAC FAILURE CONGESTIVE
     Route: 048
     Dates: start: 20051209, end: 20080129
  12. LASIX [Concomitant]
  13. COUMADIN [Concomitant]
  14. POTASSIUM CHLORIDE [Concomitant]
  15. LOVENOX [Concomitant]
  16. CIPROFLOXACIN [Concomitant]
  17. CARDIZEM CD [Concomitant]
  18. PROTONIX [Concomitant]
  19. LEXAPRO [Concomitant]
     Route: 048

REACTIONS (69)
  - TOXICITY TO VARIOUS AGENTS [None]
  - ILL-DEFINED DISORDER [None]
  - ARRHYTHMIA [None]
  - CARDIAC DISORDER [None]
  - ALCOHOL ABUSE [None]
  - PERIPHERAL ARTERIAL OCCLUSIVE DISEASE [None]
  - DIARRHOEA [None]
  - MYALGIA [None]
  - PULMONARY OEDEMA [None]
  - ASTHENIA [None]
  - LUNG HYPERINFLATION [None]
  - LOSS OF EMPLOYMENT [None]
  - CONDITION AGGRAVATED [None]
  - TUNNEL VISION [None]
  - PULMONARY FUNCTION TEST ABNORMAL [None]
  - CARDIOMEGALY [None]
  - LUNG INFILTRATION [None]
  - OSTEOARTHRITIS [None]
  - AORTIC BYPASS [None]
  - EMPHYSEMA [None]
  - MYOCARDIAL REPERFUSION INJURY [None]
  - INJURY [None]
  - PAIN [None]
  - ATRIOVENTRICULAR BLOCK FIRST DEGREE [None]
  - CHEST PAIN [None]
  - DIZZINESS [None]
  - ADVERSE DRUG REACTION [None]
  - CHRONIC OBSTRUCTIVE PULMONARY DISEASE [None]
  - PULMONARY FIBROSIS [None]
  - PYREXIA [None]
  - FATIGUE [None]
  - MITRAL VALVE INCOMPETENCE [None]
  - ANHEDONIA [None]
  - EMOTIONAL DISTRESS [None]
  - HYPOTENSION [None]
  - ELECTROCARDIOGRAM T WAVE ABNORMAL [None]
  - LEFT VENTRICULAR DYSFUNCTION [None]
  - INTERSTITIAL LUNG DISEASE [None]
  - SPIROMETRY ABNORMAL [None]
  - PULSE ABSENT [None]
  - CYANOSIS [None]
  - DEATH [None]
  - CARDIAC FAILURE CONGESTIVE [None]
  - DISABILITY [None]
  - SYNCOPE [None]
  - PERIPHERAL VASCULAR DISORDER [None]
  - HYPERTENSION [None]
  - PULSE ABNORMAL [None]
  - SINUS CONGESTION [None]
  - CATHETERISATION CARDIAC [None]
  - ATRIAL FIBRILLATION [None]
  - HYPOKINESIA [None]
  - SPONDYLITIS [None]
  - PNEUMONIA [None]
  - ARTERIOSCLEROSIS [None]
  - LABORATORY TEST ABNORMAL [None]
  - BUNDLE BRANCH BLOCK RIGHT [None]
  - INTERMITTENT CLAUDICATION [None]
  - ATELECTASIS [None]
  - ANGIOGRAM ABNORMAL [None]
  - PRESYNCOPE [None]
  - BACK PAIN [None]
  - CORONARY ARTERY THROMBOSIS [None]
  - ACTIVITIES OF DAILY LIVING IMPAIRED [None]
  - ECONOMIC PROBLEM [None]
  - RESUSCITATION [None]
  - DYSPNOEA [None]
  - SPUTUM ABNORMAL [None]
  - PLEURAL EFFUSION [None]
